FAERS Safety Report 9982730 (Version 2)
Quarter: 2015Q1

REPORT INFORMATION
  Report Type: Report from Study
  Country: US (occurrence: US)
  Receive Date: 20140307
  Receipt Date: 20150216
  Transmission Date: 20150721
  Serious: No
  Sender: FDA-Public Use
  Company Number: US-ABBVIE-13P-163-1176858-00

PATIENT
  Age: 27 Year
  Weight: 81.27 kg

DRUGS (9)
  1. CLINDINIUM/CHLORDIAZEPOXIDE [Concomitant]
     Indication: PRODUCT USED FOR UNKNOWN INDICATION
  2. HUMIRA [Suspect]
     Active Substance: ADALIMUMAB
     Dosage: 4 WEEKS AFTER FIRST DOSE
     Route: 058
     Dates: start: 2013
  3. AMARYL [Concomitant]
     Active Substance: GLIMEPIRIDE
     Indication: TYPE 2 DIABETES MELLITUS
     Dosage: PILL
  4. HUMIRA [Suspect]
     Active Substance: ADALIMUMAB
     Indication: COLITIS ULCERATIVE
     Dosage: ONE TIME DOSE
     Route: 058
     Dates: start: 201311, end: 201311
  5. HUMIRA [Suspect]
     Active Substance: ADALIMUMAB
     Dosage: ONE TIME DOSE, 2 WEEKS AFTER FIRST DOSE
     Route: 058
     Dates: start: 2013, end: 2013
  6. CITALOPRAM [Concomitant]
     Active Substance: CITALOPRAM HYDROBROMIDE
     Indication: OBSESSIVE-COMPULSIVE DISORDER
  7. UCERIS [Concomitant]
     Active Substance: BUDESONIDE
     Indication: COLITIS ULCERATIVE
  8. ASACOL HD [Concomitant]
     Active Substance: MESALAMINE
     Indication: COLITIS ULCERATIVE
     Dosage: PILLS
  9. TRADJENTA [Concomitant]
     Active Substance: LINAGLIPTIN
     Indication: TYPE 2 DIABETES MELLITUS

REACTIONS (5)
  - Injection site papule [Recovered/Resolved]
  - Incorrect dose administered by device [Unknown]
  - Device issue [Unknown]
  - Crohn^s disease [Recovering/Resolving]
  - Acne [Not Recovered/Not Resolved]

NARRATIVE: CASE EVENT DATE: 20131104
